APPROVED DRUG PRODUCT: DAPTOMYCIN
Active Ingredient: DAPTOMYCIN
Strength: 500MG/VIAL
Dosage Form/Route: POWDER;INTRAVENOUS
Application: A215215 | Product #001
Applicant: HANGZHOU ZHONGMEI HUADONG PHARMACEUTICAL CO LTD
Approved: Nov 26, 2021 | RLD: No | RS: No | Type: DISCN